FAERS Safety Report 13779756 (Version 1)
Quarter: 2017Q3

REPORT INFORMATION
  Report Type: Spontaneous
  Country: US (occurrence: US)
  Receive Date: 20170722
  Receipt Date: 20170722
  Transmission Date: 20171127
  Serious: No
  Sender: FDA-Public Use
  Company Number: US-SHIRE-US201714988

PATIENT
  Age: 26 Year
  Sex: Male
  Weight: 68.27 kg

DRUGS (5)
  1. LIALDA [Suspect]
     Active Substance: MESALAMINE
     Indication: OFF LABEL USE
     Dosage: 1.2 G, 4X/DAY:QID
     Route: 048
     Dates: start: 20170624, end: 20170625
  2. FLAGYL [Concomitant]
     Active Substance: METRONIDAZOLE\METRONIDAZOLE HYDROCHLORIDE
     Indication: COLITIS
     Dosage: UNK UNK, UNKNOWN
     Route: 048
     Dates: start: 20170612
  3. PREDNISONE. [Concomitant]
     Active Substance: PREDNISONE
     Indication: COLITIS
     Dosage: UNK UNK, UNKNOWN
     Route: 048
     Dates: start: 20170612
  4. LIALDA [Suspect]
     Active Substance: MESALAMINE
     Indication: CROHN^S DISEASE
     Dosage: UNK UNK, UNKNOWN
     Route: 065
     Dates: start: 201701, end: 2017
  5. LIALDA [Suspect]
     Active Substance: MESALAMINE
     Dosage: 1.2 G, 4X/DAY:QID
     Route: 048
     Dates: start: 20170626, end: 20170626

REACTIONS (7)
  - Abdominal pain [Recovering/Resolving]
  - Nausea [Recovering/Resolving]
  - Joint swelling [Recovering/Resolving]
  - Off label use [Recovered/Resolved]
  - Drug intolerance [Recovering/Resolving]
  - Back pain [Recovering/Resolving]
  - Vomiting [Recovering/Resolving]

NARRATIVE: CASE EVENT DATE: 201706
